FAERS Safety Report 7699629-7 (Version None)
Quarter: 2011Q3

REPORT INFORMATION
  Report Type: 
  Country: None (occurrence: None)
  Receive Date: 20110822
  Receipt Date: 20110811
  Transmission Date: 20111222
  Serious: No
  Sender: FDA-Public Use
  Company Number: US-BIOGENIDEC-2011BI017154

PATIENT
  Sex: Female

DRUGS (1)
  1. TYSABRI [Suspect]
     Indication: MULTIPLE SCLEROSIS
     Route: 042
     Dates: start: 20080820

REACTIONS (16)
  - ANKLE FRACTURE [None]
  - DIZZINESS [None]
  - SOMNOLENCE [None]
  - MOBILITY DECREASED [None]
  - MEMORY IMPAIRMENT [None]
  - GAIT DISTURBANCE [None]
  - COGNITIVE DISORDER [None]
  - ROAD TRAFFIC ACCIDENT [None]
  - STRESS [None]
  - FALL [None]
  - MENTAL IMPAIRMENT [None]
  - BACK DISORDER [None]
  - BALANCE DISORDER [None]
  - SPEECH DISORDER [None]
  - ASTHENIA [None]
  - HEAD INJURY [None]
